FAERS Safety Report 21558591 (Version 1)
Quarter: 2022Q4

REPORT INFORMATION
  Report Type: Spontaneous
  Country: BE (occurrence: BE)
  Receive Date: 20221107
  Receipt Date: 20221107
  Transmission Date: 20230113
  Serious: Yes (Other)
  Sender: FDA-Public Use
  Company Number: BE-FAMHP-DHH-N2022-118924

PATIENT
  Age: 27 Year
  Sex: Male

DRUGS (3)
  1. AZITHROMYCIN ANHYDROUS [Suspect]
     Active Substance: AZITHROMYCIN ANHYDROUS
     Indication: Gonorrhoea
     Dosage: 2000 MILLIGRAM, TOTAL (4 TABLETS IN ONE INTAKE)
     Route: 048
     Dates: start: 20220921, end: 20220921
  2. CEFTRIAXONE SODIUM [Concomitant]
     Active Substance: CEFTRIAXONE SODIUM
     Indication: Gonorrhoea
     Dosage: 500 MILLIGRAM, TOTAL (GIVEN SIX DAYS BEFORE,SOLVENT CONTAINS LIDOCAIN.)
     Route: 065
  3. STAPHYCID [Concomitant]
     Indication: Dermal cyst
     Dosage: 4 DOSAGE FORM, ONCE A DAY (4XDAILY)
     Route: 065
     Dates: start: 20220914

REACTIONS (1)
  - Hepatitis fulminant [Recovered/Resolved]

NARRATIVE: CASE EVENT DATE: 20220922
